FAERS Safety Report 9214333 (Version 1)
Quarter: 2013Q2

REPORT INFORMATION
  Report Type: Spontaneous
  Country: US (occurrence: US)
  Receive Date: 20130405
  Receipt Date: 20130405
  Transmission Date: 20140414
  Serious: Yes (Hospitalization)
  Sender: FDA-Public Use
  Company Number: US-PFIZER INC-2013090151

PATIENT
  Age: 19 Year
  Sex: Male

DRUGS (1)
  1. DILANTIN [Suspect]
     Indication: TEMPORAL LOBE EPILEPSY
     Dosage: WORK UP THE DOSE TO 3 CAPSULES, 10 GRAINS (0.098 GM.) EACH, PER DAY
     Dates: start: 19400328

REACTIONS (7)
  - Overdose [Unknown]
  - Toxicity to various agents [Unknown]
  - Nystagmus [Unknown]
  - Ataxia [Unknown]
  - Tremor [Unknown]
  - Dysarthria [Unknown]
  - Gait disturbance [Unknown]
